FAERS Safety Report 12093959 (Version 1)
Quarter: 2016Q1

REPORT INFORMATION
  Report Type: Other
  Country: US (occurrence: US)
  Receive Date: 20160219
  Receipt Date: 20160219
  Transmission Date: 20160526
  Serious: Yes (Hospitalization)
  Sender: FDA-Public Use
  Company Number: US-DEP_13590_2016

PATIENT
  Sex: Male
  Weight: 80 kg

DRUGS (21)
  1. HYDROMORPHONE [Concomitant]
     Active Substance: HYDROMORPHONE
     Indication: ANAESTHESIA
     Dosage: 5MG IN DIVIDED DOSES
     Route: 042
  2. HALOPERIDOL. [Concomitant]
     Active Substance: HALOPERIDOL
     Indication: AGITATION
     Dosage: ONCE
     Route: 042
  3. FENTANYL. [Suspect]
     Active Substance: FENTANYL
     Indication: PAIN
     Dosage: ONCE
     Route: 042
  4. METRONIDAZOLE. [Suspect]
     Active Substance: METRONIDAZOLE
     Indication: ANTIBIOTIC PROPHYLAXIS
     Dosage: ONCE
     Route: 042
  5. SUCCINYLCHOLINE [Concomitant]
     Active Substance: SUCCINYLCHOLINE
     Indication: ENDOTRACHEAL INTUBATION
     Dosage: ONCE
     Route: 042
  6. CISATRACURIUM. [Concomitant]
     Active Substance: CISATRACURIUM
     Indication: MUSCLE RELAXANT THERAPY
     Dosage: 2-8MG IN DIVIDED DOSES
     Route: 042
  7. FENTANYL. [Suspect]
     Active Substance: FENTANYL
     Indication: GENERAL ANAESTHESIA
     Dosage: 100MCG IN DIVIDED DOSES
  8. PROPOFOL. [Concomitant]
     Active Substance: PROPOFOL
     Indication: GENERAL ANAESTHESIA
     Dosage: ONCE
     Route: 042
  9. ONDANSETRON [Suspect]
     Active Substance: ONDANSETRON
     Indication: PRODUCT USED FOR UNKNOWN INDICATION
     Dosage: ONCE
     Route: 042
  10. FLUOXETINE [Suspect]
     Active Substance: FLUOXETINE HYDROCHLORIDE
     Indication: DEPRESSION
     Dosage: DF
  11. FLUOXETINE [Suspect]
     Active Substance: FLUOXETINE HYDROCHLORIDE
     Dosage: FREQUENCY UNKNOWN
  12. ERTAPENEM [Concomitant]
     Active Substance: ERTAPENEM
     Indication: PROPHYLAXIS
     Dosage: ONCE
  13. FENTANYL. [Suspect]
     Active Substance: FENTANYL
     Dosage: ONCE
     Route: 042
  14. NEOSTIGMINE [Concomitant]
     Active Substance: NEOSTIGMINE
     Indication: NEUROMUSCULAR BLOCKADE REVERSAL
     Dosage: ONCE
     Route: 042
  15. METOCLOPRAMIDE. [Suspect]
     Active Substance: METOCLOPRAMIDE
     Indication: PRODUCT USED FOR UNKNOWN INDICATION
     Dosage: ONCE
     Route: 042
  16. METHYLENE BLUE. [Suspect]
     Active Substance: METHYLENE BLUE
     Indication: THERAPEUTIC PROCEDURE
     Dosage: TWICE; TOTAL OF 2.4 MG/KG
     Route: 042
  17. SEVOFLURANE. [Concomitant]
     Active Substance: SEVOFLURANE
     Indication: ANAESTHESIA
     Dosage: 2.4 - 2.9%; OXYGEN:AIR = 1L:1L
     Route: 055
  18. GLYCOPYRROLATE. [Concomitant]
     Active Substance: GLYCOPYRROLATE
     Indication: NEUROMUSCULAR BLOCKADE REVERSAL
     Dosage: ONCE
     Route: 042
  19. MIDAZOLAM [Concomitant]
     Active Substance: MIDAZOLAM\MIDAZOLAM HYDROCHLORIDE
     Indication: PREOPERATIVE CARE
     Dosage: ONCE
     Route: 042
  20. CEFAZOLIN [Concomitant]
     Active Substance: CEFAZOLIN
     Indication: ANTIBIOTIC PROPHYLAXIS
     Dosage: ONCE
     Route: 042
  21. ETOMIDATE. [Concomitant]
     Active Substance: ETOMIDATE
     Indication: GENERAL ANAESTHESIA
     Dosage: ONCE
     Route: 042

REACTIONS (3)
  - Serotonin syndrome [Recovered/Resolved]
  - Nystagmus [Recovered/Resolved]
  - Sepsis [Recovered/Resolved]
